FAERS Safety Report 9911550 (Version 1)
Quarter: 2014Q1

REPORT INFORMATION
  Report Type: Report from Study
  Country: BR (occurrence: BR)
  Receive Date: 20140219
  Receipt Date: 20140219
  Transmission Date: 20141002
  Serious: Yes (Other)
  Sender: FDA-Public Use
  Company Number: PHHY2014BR018821

PATIENT
  Sex: Male
  Weight: 70 kg

DRUGS (2)
  1. EXELON [Suspect]
     Indication: DEMENTIA ALZHEIMER^S TYPE
     Dosage: 2 TIMES A DAY (1 IN THE MORNING AND 1 AT NIGHT)
     Dates: start: 201312
  2. CAPTOPRIL [Concomitant]
     Indication: HYPERTENSION
     Dosage: 25 MG ONCE IN THE MORNING

REACTIONS (3)
  - Speech disorder [Unknown]
  - Chromaturia [Unknown]
  - Dementia Alzheimer^s type [Unknown]
